FAERS Safety Report 4837759-5 (Version None)
Quarter: 2005Q4

REPORT INFORMATION
  Report Type: 
  Country: None (occurrence: None)
  Receive Date: 20051128
  Receipt Date: 20051004
  Transmission Date: 20060501
  Serious: Yes (Hospitalization, Disabling)
  Sender: FDA-Public Use
  Company Number: US-MERCK-0510USA03122

PATIENT
  Age: 60 Year
  Sex: Male
  Weight: 111 kg

DRUGS (9)
  1. VIOXX [Suspect]
     Indication: INFLAMMATION
     Route: 048
     Dates: start: 19990101, end: 20030601
  2. VIOXX [Suspect]
     Indication: INTERVERTEBRAL DISC PROTRUSION
     Route: 048
     Dates: start: 19990101, end: 20030601
  3. ECOTRIN [Concomitant]
     Route: 065
  4. PLAVIX [Concomitant]
     Route: 065
  5. ZOCOR [Concomitant]
     Route: 065
  6. PRANDIN [Concomitant]
     Route: 065
  7. LISINOPRIL [Concomitant]
     Route: 065
  8. ALLOPURINOL [Concomitant]
     Route: 065
  9. METOPROLOL [Concomitant]
     Route: 065

REACTIONS (17)
  - ACUTE MYOCARDIAL INFARCTION [None]
  - ANEURYSM [None]
  - CARDIAC FAILURE CONGESTIVE [None]
  - CORONARY ARTERY DISEASE [None]
  - DIABETES MELLITUS [None]
  - DUODENITIS [None]
  - DYSPNOEA [None]
  - GASTRITIS [None]
  - HERNIA [None]
  - HYPERCHOLESTEROLAEMIA [None]
  - INTERVERTEBRAL DISC PROTRUSION [None]
  - NASOPHARYNGITIS [None]
  - NEOPLASM [None]
  - PULMONARY OEDEMA [None]
  - PYREXIA [None]
  - SINUS BRADYCARDIA [None]
  - WEIGHT INCREASED [None]
